FAERS Safety Report 6993372-5 (Version None)
Quarter: 2010Q3

REPORT INFORMATION
  Report Type: 
  Country: None (occurrence: None)
  Receive Date: 20100917
  Receipt Date: 20100422
  Transmission Date: 20110219
  Serious: No
  Sender: FDA-Public Use
  Company Number: US-ASTRAZENECA-2010SE17987

PATIENT
  Age: 348 Month
  Sex: Female
  Weight: 52.2 kg

DRUGS (2)
  1. SEROQUEL XR [Suspect]
     Route: 048
     Dates: start: 20090101, end: 20100301
  2. SEROQUEL XR [Suspect]
     Route: 048
     Dates: start: 20100401

REACTIONS (3)
  - ANXIETY [None]
  - DEPRESSION [None]
  - HEADACHE [None]
